FAERS Safety Report 20866038 (Version 1)
Quarter: 2022Q2

REPORT INFORMATION
  Report Type: Spontaneous
  Country: US (occurrence: None)
  Receive Date: 20220523
  Receipt Date: 20220523
  Transmission Date: 20220721
  Serious: No
  Sender: FDA-Public Use
  Company Number: None

PATIENT
  Age: 69 Year
  Sex: Female
  Weight: 42.75 kg

DRUGS (29)
  1. PAXLOVID [Suspect]
     Active Substance: NIRMATRELVIR\RITONAVIR
     Indication: COVID-19
     Dosage: OTHER QUANTITY : 3 TABLET(S);?FREQUENCY : TWICE A DAY;?
     Route: 048
  2. ADVAIR HFA [Concomitant]
     Active Substance: FLUTICASONE PROPIONATE\SALMETEROL XINAFOATE
  3. CEPHALEXIN [Concomitant]
     Active Substance: CEPHALEXIN
  4. HALOBETASOL PROPIONATE [Concomitant]
     Active Substance: HALOBETASOL PROPIONATE
  5. IMIPRAMINE [Concomitant]
     Active Substance: IMIPRAMINE
  6. LEVOTHYROXINE [Concomitant]
     Active Substance: LEVOTHYROXINE
  7. LIPITOR [Concomitant]
     Active Substance: ATORVASTATIN CALCIUM
  8. MICARDIS [Concomitant]
     Active Substance: TELMISARTAN
  9. BUDESONIDE [Concomitant]
     Active Substance: BUDESONIDE
  10. MUPIROCIN [Concomitant]
     Active Substance: MUPIROCIN
  11. PLAQUENIL [Concomitant]
     Active Substance: HYDROXYCHLOROQUINE SULFATE
  12. PREMARIN [Concomitant]
     Active Substance: ESTROGENS, CONJUGATED
  13. PROAIR HFA [Concomitant]
     Active Substance: ALBUTEROL SULFATE
  14. RESTASIS [Concomitant]
     Active Substance: CYCLOSPORINE
  15. TOPROL XL [Concomitant]
     Active Substance: METOPROLOL SUCCINATE
  16. TRETINOIN [Concomitant]
     Active Substance: TRETINOIN
  17. ASPIRIN [Concomitant]
     Active Substance: ASPIRIN
  18. CALCIUM [Concomitant]
     Active Substance: CALCIUM
  19. REFRESH CELLUVISC [Concomitant]
     Active Substance: CARBOXYMETHYLCELLULOSE SODIUM
  20. CRANBERRY [Concomitant]
     Active Substance: CRANBERRY
  21. FAMOTIDINE [Concomitant]
     Active Substance: FAMOTIDINE
  22. IRON [Concomitant]
     Active Substance: IRON
  23. saline sinus rinse [Concomitant]
  24. MUCINEX [Concomitant]
     Active Substance: GUAIFENESIN
  25. PROBIOTICS NOS [Concomitant]
     Active Substance: PROBIOTICS NOS
  26. REFRESH PLUS [Concomitant]
     Active Substance: CARBOXYMETHYLCELLULOSE SODIUM
  27. SIMETHICONE (DIMETHICONE) [Concomitant]
     Active Substance: DIMETHICONE
  28. VITAMIN D [Concomitant]
     Active Substance: VITAMIN D NOS
  29. ZYRTEC [Concomitant]
     Active Substance: CETIRIZINE HYDROCHLORIDE

REACTIONS (2)
  - Muscle twitching [None]
  - Ophthalmic migraine [None]

NARRATIVE: CASE EVENT DATE: 20220519
